FAERS Safety Report 9181335 (Version 1)
Quarter: 2013Q1

REPORT INFORMATION
  Report Type: Spontaneous
  Country: US (occurrence: US)
  Receive Date: 20130322
  Receipt Date: 20130322
  Transmission Date: 20140127
  Serious: No
  Sender: FDA-Public Use
  Company Number: US-PFIZER INC-2013092726

PATIENT
  Age: 54 Year
  Sex: Female
  Weight: 83.9 kg

DRUGS (5)
  1. XELJANZ [Suspect]
     Indication: RHEUMATOID ARTHRITIS
     Dosage: UNK, 2X/DAY
     Dates: start: 201303, end: 201303
  2. XELJANZ [Suspect]
     Dosage: UNK, 2X/DAY
     Dates: start: 20130318
  3. NEURONTIN [Suspect]
     Indication: PAIN
     Dosage: UNK, 1X/DAY
  4. PREDNISONE [Concomitant]
     Dosage: UNK
  5. PERCOCET [Concomitant]
     Dosage: 10/325 MG, UNK

REACTIONS (6)
  - Headache [Unknown]
  - Mood swings [Unknown]
  - Depression [Unknown]
  - Crying [Unknown]
  - Feeling abnormal [Unknown]
  - Pain [Unknown]
